FAERS Safety Report 9718701 (Version 2)
Quarter: 2013Q4

REPORT INFORMATION
  Report Type: Not Available
  Country: US (occurrence: US)
  Receive Date: 20131125
  Receipt Date: 20131125
  Transmission Date: 20140711
  Serious: Yes (Hospitalization)
  Sender: FDA-Public Use
  Company Number: US-H. LUNDBECK A/S-DKLU1092491

PATIENT
  Sex: Female

DRUGS (6)
  1. ONFI [Suspect]
     Indication: COMPLEX PARTIAL SEIZURES
     Dates: start: 201301
  2. ONFI [Suspect]
     Indication: EPILEPSY
  3. ZONEGRAN [Concomitant]
     Indication: PRODUCT USED FOR UNKNOWN INDICATION
  4. LAMICTAL [Concomitant]
     Indication: PRODUCT USED FOR UNKNOWN INDICATION
  5. LORCET [Concomitant]
     Indication: PRODUCT USED FOR UNKNOWN INDICATION
  6. XANAX [Concomitant]
     Indication: PRODUCT USED FOR UNKNOWN INDICATION

REACTIONS (3)
  - Convulsion [Unknown]
  - Migraine [Unknown]
  - Gait disturbance [Unknown]
